FAERS Safety Report 8117296-5 (Version None)
Quarter: 2012Q1

REPORT INFORMATION
  Report Type: 
  Country: None (occurrence: None)
  Receive Date: 20120206
  Receipt Date: 20120127
  Transmission Date: 20120608
  Serious: Yes (Other)
  Sender: FDA-Public Use
  Company Number: FR-ASTRAZENECA-2011SE73223

PATIENT
  Age: 749 Month
  Sex: Female
  Weight: 63 kg

DRUGS (6)
  1. MOXYDAR [Suspect]
     Dates: start: 20090101
  2. ZITHROMAX [Concomitant]
     Dates: start: 20111027, end: 20111029
  3. NEXIUM [Suspect]
     Indication: GASTRITIS
     Route: 048
     Dates: start: 20111101, end: 20111110
  4. NEXIUM [Suspect]
     Dosage: LONG LASTING
     Route: 048
     Dates: start: 20101001, end: 20111101
  5. NEXIUM [Suspect]
     Indication: GASTRIC ULCER
     Route: 048
     Dates: start: 20111101, end: 20111110
  6. NEXIUM [Suspect]
     Dosage: LONG LASTING
     Route: 048
     Dates: start: 20101001, end: 20111101

REACTIONS (4)
  - FUNGAL INFECTION [None]
  - ORAL CANDIDIASIS [None]
  - VAGINAL INFECTION [None]
  - CYSTITIS [None]
